FAERS Safety Report 8263401 (Version 3)
Quarter: 2013Q1

REPORT INFORMATION
  Report Type: Report from Study
  Country: NL (occurrence: NL)
  Receive Date: 20111125
  Receipt Date: 20130219
  Transmission Date: 20140127
  Serious: Yes (Hospitalization)
  Sender: FDA-Public Use
  Company Number: PHHO2011NL019116

PATIENT
  Age: 23 Year
  Sex: Male
  Weight: 85 kg

DRUGS (8)
  1. PREDNISOLONE [Suspect]
     Indication: STEM CELL TRANSPLANT
     Dosage: 30 MG, UNK
     Route: 048
     Dates: start: 20111026
  2. PREDNISOLONE [Suspect]
     Dosage: 20 MG, UNK
     Dates: start: 20111027
  3. PREDNISOLONE [Suspect]
     Dosage: 50 MG, UNK
     Route: 048
     Dates: start: 20111028
  4. PREDNISOLONE [Suspect]
     Dosage: 85 MG, UNK
     Route: 042
     Dates: start: 20111030
  5. VALACICLOVIR [Suspect]
     Dosage: 500 MG, UNK
     Route: 048
     Dates: start: 20110930
  6. CO-TRIMOXAZOLE [Suspect]
     Dosage: 480 MG, UNK
     Route: 048
     Dates: start: 20111012
  7. SANDIMMUN [Suspect]
     Indication: STEM CELL TRANSPLANT
     Dosage: 125 MG, UNK
     Route: 048
     Dates: start: 20110925
  8. MYCOPHENOLIC ACID [Suspect]
     Indication: STEM CELL TRANSPLANT
     Dosage: 1080 MG, UNK
     Route: 048
     Dates: start: 20110930, end: 20111030

REACTIONS (2)
  - Acute graft versus host disease in skin [Not Recovered/Not Resolved]
  - Disease progression [Not Recovered/Not Resolved]
